FAERS Safety Report 8000392-0 (Version None)
Quarter: 2011Q4

REPORT INFORMATION
  Report Type: 
  Country: None (occurrence: None)
  Receive Date: 20111216
  Receipt Date: 20111207
  Transmission Date: 20120403
  Serious: Yes (Hospitalization)
  Sender: FDA-Public Use
  Company Number: 2011MA017591

PATIENT
  Age: 65 Year
  Sex: Female

DRUGS (5)
  1. CCO-CODAMOL [Concomitant]
  2. IBUPROFEN [Suspect]
     Indication: SCIATICA
     Dosage: 400 MG;TID;PO
     Route: 048
     Dates: start: 20110226, end: 20110228
  3. BENDROFLUMETHIAZIDE [Concomitant]
  4. NAPROXEN [Suspect]
     Indication: SCIATICA
     Dosage: 250 MG;TID;PO
     Route: 048
     Dates: start: 20110225, end: 20110228
  5. AMLODIPINE [Concomitant]

REACTIONS (4)
  - GASTRIC ULCER [None]
  - GASTROINTESTINAL HAEMORRHAGE [None]
  - HAEMATEMESIS [None]
  - DUODENAL ULCER [None]
